FAERS Safety Report 11497565 (Version 1)
Quarter: 2015Q3

REPORT INFORMATION
  Report Type: Spontaneous
  Country: NL (occurrence: NL)
  Receive Date: 20150911
  Receipt Date: 20150911
  Transmission Date: 20151125
  Serious: Yes (Other)
  Sender: FDA-Public Use
  Company Number: NL-PFIZER INC-2015297442

PATIENT
  Age: 61 Year
  Sex: Female
  Weight: 70 kg

DRUGS (10)
  1. DAKTARIN /00310801/ [Concomitant]
     Active Substance: MICONAZOLE NITRATE
     Dosage: 2.5 ML, 4X/DAY
     Route: 048
  2. MELATONINE [Concomitant]
     Active Substance: MELATONIN
     Dosage: 5 MG, 1X/DAY
     Route: 048
  3. METFORMINE [Concomitant]
     Active Substance: METFORMIN HYDROCHLORIDE
     Dosage: 500 MG, 2X/DAY
     Route: 048
  4. PARNATE [Concomitant]
     Active Substance: TRANYLCYPROMINE SULFATE
     Dosage: 10 MG, UNK
     Route: 048
  5. LOSARTANKALIUM [Concomitant]
     Active Substance: LOSARTAN
     Dosage: 50 MG, 1X/DAY
     Route: 048
  6. OMEPRAZOL ACTAVIS [Concomitant]
     Active Substance: OMEPRAZOLE
     Dosage: 20 MG, 1X/DAY
     Route: 048
  7. LYRICA [Suspect]
     Active Substance: PREGABALIN
     Indication: NEURALGIA
     Dosage: 75 MG, 4X/DAY
     Route: 048
     Dates: start: 20150810, end: 20150821
  8. LORAZEPAM MYLAN [Concomitant]
     Active Substance: LORAZEPAM
     Dosage: UNK
     Route: 048
  9. VICTOZA [Concomitant]
     Active Substance: LIRAGLUTIDE
     Dosage: 1 DF, 1X/DAY
     Route: 058
  10. COLECALCIFEROL [Concomitant]
     Active Substance: CHOLECALCIFEROL
     Dosage: 2 DF, 1X/MONTH

REACTIONS (4)
  - Nausea [Unknown]
  - Hyperglycaemia [Recovering/Resolving]
  - Somnolence [Unknown]
  - Headache [Unknown]

NARRATIVE: CASE EVENT DATE: 20150813
